FAERS Safety Report 25250499 (Version 1)
Quarter: 2025Q2

REPORT INFORMATION
  Report Type: Report from Study
  Country: CN (occurrence: CN)
  Receive Date: 20250429
  Receipt Date: 20250429
  Transmission Date: 20250717
  Serious: Yes (Death, Other)
  Sender: ROCHE
  Company Number: CN-ROCHE-10000269325

PATIENT

DRUGS (7)
  1. MYCOPHENOLATE MOFETIL [Suspect]
     Active Substance: MYCOPHENOLATE MOFETIL
     Indication: Prophylaxis against transplant rejection
     Dosage: STARTING ON DAY -7
     Route: 065
  2. ETOPOSIDE [Suspect]
     Active Substance: ETOPOSIDE
     Indication: Haemophagocytic lymphohistiocytosis
     Route: 065
  3. BUSULFAN [Suspect]
     Active Substance: BUSULFAN
     Indication: Haemophagocytic lymphohistiocytosis
     Route: 065
  4. FLUDARABINE [Suspect]
     Active Substance: FLUDARABINE PHOSPHATE
     Indication: Haemophagocytic lymphohistiocytosis
     Route: 065
  5. LAPINE T-LYMPHOCYTE IMMUNE GLOBULIN [Suspect]
     Active Substance: LAPINE T-LYMPHOCYTE IMMUNE GLOBULIN
     Indication: Haemophagocytic lymphohistiocytosis
     Route: 065
  6. CYCLOPHOSPHAMIDE [Suspect]
     Active Substance: CYCLOPHOSPHAMIDE
     Indication: Haemophagocytic lymphohistiocytosis
     Route: 065
  7. CYCLOSPORINE [Suspect]
     Active Substance: CYCLOSPORINE
     Indication: Prophylaxis against transplant rejection
     Route: 065

REACTIONS (15)
  - Cytomegalovirus infection [Unknown]
  - Norovirus infection [Unknown]
  - Epstein-Barr virus infection [Unknown]
  - Varicella zoster virus infection [Unknown]
  - Cytomegalovirus chorioretinitis [Unknown]
  - Pneumonia cytomegaloviral [Unknown]
  - Cystitis haemorrhagic [Unknown]
  - Klebsiella infection [Unknown]
  - Acinetobacter infection [Unknown]
  - Staphylococcal infection [Unknown]
  - Enterobacter infection [Unknown]
  - Fungal infection [Unknown]
  - Infection [Fatal]
  - Thrombotic microangiopathy [Fatal]
  - Venoocclusive disease [Unknown]
